FAERS Safety Report 23127599 (Version 1)
Quarter: 2023Q4

REPORT INFORMATION
  Report Type: Spontaneous
  Country: JP (occurrence: JP)
  Receive Date: 20231031
  Receipt Date: 20231031
  Transmission Date: 20240109
  Serious: Yes (Other)
  Sender: FDA-Public Use
  Company Number: JP-VALIDUS PHARMACEUTICALS LLC-JP-VDP-2023-018049

PATIENT

DRUGS (5)
  1. CEFOTAXIME SODIUM [Suspect]
     Active Substance: CEFOTAXIME SODIUM
     Indication: Meningitis bacterial
     Route: 065
  2. VANCOMYCIN HYDROCHLORIDE [Suspect]
     Active Substance: VANCOMYCIN HYDROCHLORIDE
     Indication: Meningitis bacterial
     Dosage: 360 MG, QID
     Route: 065
  3. VANCOMYCIN HYDROCHLORIDE [Suspect]
     Active Substance: VANCOMYCIN HYDROCHLORIDE
     Dosage: 450 MG, QID
     Route: 065
  4. MANNITOL [Suspect]
     Active Substance: MANNITOL
     Indication: Product used for unknown indication
     Route: 065
  5. MEROPENEM [Concomitant]
     Active Substance: MEROPENEM
     Indication: Product used for unknown indication
     Route: 065

REACTIONS (2)
  - Drug level increased [Unknown]
  - Drug interaction [Unknown]
